FAERS Safety Report 9387091 (Version 1)
Quarter: 2013Q3

REPORT INFORMATION
  Report Type: Spontaneous
  Country: US (occurrence: None)
  Receive Date: 20130703
  Receipt Date: 20130703
  Transmission Date: 20140515
  Serious: Yes (Other)
  Sender: FDA-Public Use
  Company Number: None

PATIENT
  Age: 79 Year
  Sex: Male
  Weight: 70.31 kg

DRUGS (11)
  1. VENLAFAXINE HCL ER [Suspect]
     Indication: DEPRESSION
     Dosage: 150MG! CAP. 1 CAP 2 PER DAY MOUTH
     Route: 048
  2. ASOCOL [Concomitant]
  3. AMLODIPINE BESYLATE [Concomitant]
  4. CRESTOR [Concomitant]
  5. GABPENTIN [Concomitant]
  6. VENALFAXINE HCL ER [Concomitant]
  7. LUTIN [Concomitant]
  8. CALCIUM [Concomitant]
  9. ONE A DAY VIT [Concomitant]
  10. FISH OIL [Concomitant]
  11. IRON [Concomitant]

REACTIONS (15)
  - Nightmare [None]
  - Hyperhidrosis [None]
  - Fall [None]
  - Screaming [None]
  - Nightmare [None]
  - Feeling abnormal [None]
  - Headache [None]
  - Pain [None]
  - Dry mouth [None]
  - Abdominal discomfort [None]
  - Fatigue [None]
  - Fear [None]
  - Withdrawal syndrome [None]
  - Drug dose omission [None]
  - Product substitution issue [None]
